FAERS Safety Report 12182288 (Version 3)
Quarter: 2016Q2

REPORT INFORMATION
  Report Type: Spontaneous
  Country: US (occurrence: US)
  Receive Date: 20160316
  Receipt Date: 20160504
  Transmission Date: 20160815
  Serious: Yes (Death, Hospitalization, Other)
  Sender: FDA-Public Use
  Company Number: US-AMGEN-USASP2016030380

PATIENT
  Age: 70 Year
  Sex: Male
  Weight: 92.51 kg

DRUGS (38)
  1. DOXIL [Concomitant]
     Active Substance: DOXORUBICIN HYDROCHLORIDE
     Dosage: 5 MG/M2, UNK
     Route: 042
  2. MIDAZOLAM [Concomitant]
     Active Substance: MIDAZOLAM\MIDAZOLAM HYDROCHLORIDE
     Dosage: 100 MG IN D5W 100 ML DRIP
  3. AZITHROMYCIN ANHYDROUS. [Concomitant]
     Active Substance: AZITHROMYCIN ANHYDROUS
     Dosage: 500 MG, UNK
  4. AMIDATE [Concomitant]
     Active Substance: ETOMIDATE
     Dosage: 2 MG/ML
  5. KYPROLIS [Suspect]
     Active Substance: CARFILZOMIB
     Indication: PLASMA CELL MYELOMA
     Dosage: QWK
     Route: 065
     Dates: end: 20140204
  6. LIDOCAINE. [Concomitant]
     Active Substance: LIDOCAINE
     Dosage: 1 %
  7. NORCO [Concomitant]
     Active Substance: ACETAMINOPHEN\HYDROCODONE BITARTRATE
     Dosage: BID
  8. FLEXERIL [Concomitant]
     Active Substance: CYCLOBENZAPRINE HYDROCHLORIDE
     Dosage: 10 MG, TID
  9. ALPHA LIPOIC ACID [Concomitant]
     Active Substance: .ALPHA.-LIPOIC ACID
     Indication: NEUROPATHY PERIPHERAL
     Dosage: 600 MG, QD
     Route: 048
  10. DECADRON [Suspect]
     Active Substance: DEXAMETHASONE
     Indication: PRODUCT USED FOR UNKNOWN INDICATION
     Dosage: 40 MG, QWK
     Route: 065
  11. TIMOLOL. [Concomitant]
     Active Substance: TIMOLOL
     Indication: EYE DISORDER
     Dosage: UNK
  12. VITAMIN B COMPLEX [Concomitant]
     Active Substance: CYANOCOBALAMIN\DEXPANTHENOL\NIACINAMIDE\PYRIDOXINE HYDROCHLORIDE\RIBOFLAVIN 5^-PHOSPHATE SODIUM\THIAMINE HYDROCHLORIDE\VITAMIN B COMPLEX
     Dosage: UNK
  13. VITAMIN D                          /00107901/ [Concomitant]
     Active Substance: ERGOCALCIFEROL
     Dosage: 1200 IU, QD
     Route: 048
  14. NOREPINEPHRINE [Concomitant]
     Active Substance: NOREPINEPHRINE\NOREPINEPHRINE BITARTRATE
     Dosage: 2 MUG/MIN
     Route: 042
     Dates: start: 20140207, end: 20140207
  15. CEFTRIAXONE. [Concomitant]
     Active Substance: CEFTRIAXONE
     Dosage: 2 G, UNK
  16. MORPHINE [Concomitant]
     Active Substance: MORPHINE
     Dosage: 4 MG, ONCE
  17. VANCOMYCIN [Concomitant]
     Active Substance: VANCOMYCIN
     Dosage: 1000 MG, UNK
  18. FENTANYL. [Concomitant]
     Active Substance: FENTANYL
     Dosage: 50 MCG/HR
     Route: 042
     Dates: start: 20140207, end: 20140207
  19. GLUCAGEN                           /00157801/ [Concomitant]
     Dosage: 1 MG
  20. LEVAQUIN [Concomitant]
     Active Substance: LEVOFLOXACIN
     Dosage: 750 MG
  21. VELCADE [Concomitant]
     Active Substance: BORTEZOMIB
     Dosage: 1 MG/M2, DAY 1,4,8 AND 11
     Route: 058
  22. METOPROLOL. [Concomitant]
     Active Substance: METOPROLOL
     Dosage: 50 MG, QD
  23. SALMON OIL [Concomitant]
     Active Substance: FISH OIL
     Dosage: UNK
  24. FISH OIL [Concomitant]
     Active Substance: FISH OIL
     Dosage: UNK
  25. PHENYLEPHRINE [Concomitant]
     Active Substance: PHENYLEPHRINE\PHENYLEPHRINE HYDROCHLORIDE
     Dosage: UNK
  26. PROMETHAZINE [Concomitant]
     Active Substance: PROMETHAZINE\PROMETHAZINE HYDROCHLORIDE
     Dosage: UNK
  27. CODEINE [Concomitant]
     Active Substance: CODEINE
     Indication: COUGH
     Dosage: 5 ML
  28. OXYCODONE AND ACETAMINOPHEN [Concomitant]
     Active Substance: ACETAMINOPHEN\OXYCODONE HYDROCHLORIDE
     Dosage: UNK
  29. ZOMETA [Concomitant]
     Active Substance: ZOLEDRONIC ACID
     Dosage: 4 MG, UNK
     Route: 042
  30. ONDANSETRON [Concomitant]
     Active Substance: ONDANSETRON
     Dosage: 4 UNK, ONCE
  31. VECURONIUM [Concomitant]
     Active Substance: VECURONIUM BROMIDE
     Dosage: 6 MG
  32. HYDROCHOROTHIAZIDE [Concomitant]
     Active Substance: HYDROCHLOROTHIAZIDE
     Dosage: 25 MG, QD
     Route: 048
  33. IBUPROFEN. [Concomitant]
     Active Substance: IBUPROFEN
     Dosage: 600 MG, TID
  34. ZYRTEC [Concomitant]
     Active Substance: CETIRIZINE HYDROCHLORIDE
     Dosage: UNK
  35. ACYCLOVIR                          /00587301/ [Concomitant]
     Active Substance: ACYCLOVIR
     Indication: HERPES ZOSTER
     Dosage: 400 MG, BID
     Route: 042
  36. FENTANYL. [Concomitant]
     Active Substance: FENTANYL
     Dosage: 25 MCG
  37. MIDAZOLAM [Concomitant]
     Active Substance: MIDAZOLAM\MIDAZOLAM HYDROCHLORIDE
     Dosage: 1 MG/HR
     Route: 042
     Dates: start: 20140207, end: 20140207
  38. NORCURON [Concomitant]
     Active Substance: VECURONIUM BROMIDE
     Dosage: 4 MG/HR
     Route: 042
     Dates: start: 20140207, end: 20140207

REACTIONS (40)
  - Multiple organ dysfunction syndrome [Unknown]
  - Anaemia [Unknown]
  - Atrial fibrillation [Recovered/Resolved]
  - Cardio-respiratory arrest [Recovered/Resolved]
  - Cognitive disorder [Unknown]
  - Nocturia [Unknown]
  - Metabolic acidosis [Unknown]
  - Myocardial ischaemia [Unknown]
  - Dry skin [Unknown]
  - Pollakiuria [Unknown]
  - Nasopharyngitis [Unknown]
  - Hyperglycaemia [Recovered/Resolved]
  - Troponin increased [Unknown]
  - Septic shock [Unknown]
  - Acute respiratory distress syndrome [Unknown]
  - Pulmonary mass [Unknown]
  - Thrombocytopenia [Unknown]
  - Skin discolouration [Unknown]
  - Musculoskeletal pain [Not Recovered/Not Resolved]
  - Cardiomegaly [Fatal]
  - Bradycardia [Unknown]
  - Diarrhoea [Unknown]
  - Memory impairment [Unknown]
  - Respiratory tract congestion [Unknown]
  - Malaise [Unknown]
  - Back pain [Unknown]
  - Upper respiratory tract infection [Recovered/Resolved]
  - Flank pain [Unknown]
  - Hypoxia [Unknown]
  - Acute kidney injury [Unknown]
  - Hyponatraemia [Unknown]
  - Hypotension [Unknown]
  - Anxiety [Unknown]
  - Acute respiratory failure [Unknown]
  - Pneumonia [Unknown]
  - Night sweats [Recovered/Resolved]
  - H1N1 influenza [Fatal]
  - Productive cough [Unknown]
  - Grip strength decreased [Unknown]
  - Pyrexia [Unknown]

NARRATIVE: CASE EVENT DATE: 201310
